FAERS Safety Report 11637229 (Version 1)
Quarter: 2015Q4

REPORT INFORMATION
  Report Type: Spontaneous
  Country: US (occurrence: US)
  Receive Date: 20151016
  Receipt Date: 20151016
  Transmission Date: 20160304
  Serious: Yes (Death)
  Sender: FDA-Public Use
  Company Number: US-PFIZER INC-2015343589

PATIENT
  Age: 74 Year
  Sex: Male
  Weight: 110 kg

DRUGS (6)
  1. OXYGEN. [Concomitant]
     Active Substance: OXYGEN
     Dosage: 6 LITERS 24 HOURS A DAY, 7 DAYS A WEEK
  2. ALBUTEROL. [Concomitant]
     Active Substance: ALBUTEROL
     Dosage: 1 DF, 3X/DAY (ALBUTEROL INHALER 1 PUFF 3 TIMES A DAY)
  3. AUTOLOGOUS EYE DROPS [Concomitant]
  4. REVATIO [Suspect]
     Active Substance: SILDENAFIL CITRATE
     Indication: CHRONIC OBSTRUCTIVE PULMONARY DISEASE
     Dosage: 20 MG, 3X/DAY
     Route: 048
     Dates: end: 20150314
  5. RESTASIS [Concomitant]
     Active Substance: CYCLOSPORINE
  6. INSULIN [Concomitant]
     Active Substance: INSULIN NOS
     Dosage: UNK

REACTIONS (3)
  - Chronic obstructive pulmonary disease [Fatal]
  - Peripheral swelling [Unknown]
  - Product use issue [Unknown]
